FAERS Safety Report 15219520 (Version 1)
Quarter: 2018Q3

REPORT INFORMATION
  Report Type: Spontaneous
  Country: US (occurrence: US)
  Receive Date: 20180731
  Receipt Date: 20180731
  Transmission Date: 20181010
  Serious: Yes (Other)
  Sender: FDA-Public Use
  Company Number: US-BEH-2018093192

PATIENT
  Age: 73 Year
  Sex: Female
  Weight: 71.66 kg

DRUGS (19)
  1. HIZENTRA [Suspect]
     Active Substance: HUMAN IMMUNOGLOBULIN G
     Dosage: 16 G, QOW
     Route: 058
     Dates: start: 20180520
  2. ACETAMINOPHEN. [Concomitant]
     Active Substance: ACETAMINOPHEN
  3. MULTAQ [Concomitant]
     Active Substance: DRONEDARONE
  4. HIZENTRA [Suspect]
     Active Substance: HUMAN IMMUNOGLOBULIN G
     Indication: PRODUCT USED FOR UNKNOWN INDICATION
     Dosage: UNK
     Route: 058
  5. LASIX [Concomitant]
     Active Substance: FUROSEMIDE
  6. HIZENTRA [Suspect]
     Active Substance: HUMAN IMMUNOGLOBULIN G
     Dosage: UNK
     Route: 058
  7. KEFLEX [Concomitant]
     Active Substance: CEPHALEXIN
  8. LISINOPRIL. [Concomitant]
     Active Substance: LISINOPRIL
  9. RECLAST [Concomitant]
     Active Substance: ZOLEDRONIC ACID
  10. ASA [Concomitant]
     Active Substance: ASPIRIN
  11. OMEPRAZOLE. [Concomitant]
     Active Substance: OMEPRAZOLE
  12. XOPENEX [Concomitant]
     Active Substance: LEVALBUTEROL HYDROCHLORIDE
  13. NUCALA [Concomitant]
     Active Substance: MEPOLIZUMAB
  14. POTASSIUM CHLORIDE. [Concomitant]
     Active Substance: POTASSIUM CHLORIDE
  15. HIZENTRA [Suspect]
     Active Substance: HUMAN IMMUNOGLOBULIN G
     Dosage: UNK
     Route: 058
  16. DULERA [Concomitant]
     Active Substance: FORMOTEROL FUMARATE DIHYDRATE\MOMETASONE FUROATE
  17. CARVEDILOL. [Concomitant]
     Active Substance: CARVEDILOL
  18. DIPHENHYDRAMINE. [Concomitant]
     Active Substance: DIPHENHYDRAMINE
  19. EPINEPHRINE. [Concomitant]
     Active Substance: EPINEPHRINE

REACTIONS (1)
  - Atrial fibrillation [Unknown]

NARRATIVE: CASE EVENT DATE: 20180720
